FAERS Safety Report 4344442-1 (Version None)
Quarter: 2004Q2

REPORT INFORMATION
  Report Type: 
  Country: None (occurrence: None)
  Receive Date: 20040419
  Receipt Date: 20040402
  Transmission Date: 20050107
  Serious: Yes (Other)
  Sender: FDA-Public Use
  Company Number: 22003M00FRA

PATIENT
  Age: 16 Year
  Sex: Female
  Weight: 42.4 kg

DRUGS (2)
  1. SAIZEN [Suspect]
     Indication: GROWTH HORMONE DEFICIENCY
     Dosage: 1.17 MG, 6 IN 1 WEEKS,  SUBCUTANEOUS
     Route: 058
     Dates: start: 19991021, end: 20000930
  2. GONADORELIN INJ [Concomitant]

REACTIONS (1)
  - ASTROCYTOMA [None]
